FAERS Safety Report 20157104 (Version 1)
Quarter: 2021Q4

REPORT INFORMATION
  Report Type: Spontaneous
  Country: SA (occurrence: SA)
  Receive Date: 20211207
  Receipt Date: 20211207
  Transmission Date: 20220303
  Serious: Yes (Death)
  Sender: FDA-Public Use
  Company Number: SA-BIOMARINAP-SA-2021-139989

PATIENT
  Sex: Male

DRUGS (1)
  1. ALDURAZYME [Suspect]
     Active Substance: LARONIDASE
     Indication: Mucopolysaccharidosis I
     Dosage: 100 MILLIGRAM/KILOGRAM, QW
     Route: 065

REACTIONS (2)
  - Respiratory disorder [Fatal]
  - Respiratory tract infection [Fatal]
